FAERS Safety Report 7570558-2 (Version None)
Quarter: 2011Q2

REPORT INFORMATION
  Report Type: 
  Country: None (occurrence: None)
  Receive Date: 20110620
  Receipt Date: 20110610
  Transmission Date: 20111010
  Serious: Yes (Hospitalization)
  Sender: FDA-Public Use
  Company Number: 2011SP027392

PATIENT
  Age: 84 Year
  Sex: Female

DRUGS (3)
  1. MIRTAZAPINE [Suspect]
     Indication: PRODUCT USED FOR UNKNOWN INDICATION
     Dosage: 15 MG, QD, PO
     Route: 048
     Dates: start: 20100801, end: 20101108
  2. TERCIAN [Concomitant]
  3. OXAZEPAM [Concomitant]

REACTIONS (2)
  - HYPONATRAEMIA [None]
  - FALL [None]
